FAERS Safety Report 6298663-1 (Version None)
Quarter: 2009Q3

REPORT INFORMATION
  Report Type: 
  Country: None (occurrence: None)
  Receive Date: 20090804
  Receipt Date: 20090725
  Transmission Date: 20100115
  Serious: Yes (Hospitalization)
  Sender: FDA-Public Use
  Company Number: 2009US002884

PATIENT
  Age: 17 Year
  Sex: Male

DRUGS (4)
  1. PROGRAF [Suspect]
     Indication: LIVER TRANSPLANT
  2. PREDNISONE TAB [Concomitant]
  3. AMLODIPINE [Concomitant]
  4. SULFAMETHOXAZOLE AND TRIMETHOPRIM [Concomitant]

REACTIONS (2)
  - ANAEMIA HAEMOLYTIC AUTOIMMUNE [None]
  - OROPHARYNGEAL PAIN [None]
